FAERS Safety Report 9293906 (Version 1)
Quarter: 2013Q1

REPORT INFORMATION
  Report Type: Spontaneous
  Country: US (occurrence: None)
  Receive Date: 20121218
  Receipt Date: 20121218
  Transmission Date: 20140127
  Serious: Yes (Other)
  Sender: FDA-Public Use
  Company Number: PHEH2012US012129

PATIENT
  Age: 65 Year
  Sex: Female

DRUGS (10)
  1. FEMARA [Suspect]
     Indication: BLOOD OESTROGEN DECREASED
     Route: 048
  2. METFORMIN (METFORMIN) [Concomitant]
  3. RANITIDINE (RANITIDINE) [Concomitant]
  4. ENALAPRIL [Concomitant]
  5. LOVASTATIN (LOVASTATIN) [Concomitant]
  6. ALPRAZOLAM (ALPRAZOLAM) [Concomitant]
  7. ALEVE (NAPROXEN SODIUM) [Concomitant]
  8. TYLENOL (PARACETAMOL) [Concomitant]
  9. ESSIAC [Concomitant]
  10. XGEVA [Concomitant]

REACTIONS (3)
  - Neoplasm [None]
  - Local swelling [None]
  - Malignant neoplasm progression [None]
